FAERS Safety Report 7466291-8 (Version None)
Quarter: 2011Q2

REPORT INFORMATION
  Report Type: 
  Country: None (occurrence: None)
  Receive Date: 20110505
  Receipt Date: 20110505
  Transmission Date: 20111010
  Serious: Yes (Death)
  Sender: FDA-Public Use
  Company Number: None

PATIENT
  Age: 78 Year
  Sex: Male

DRUGS (14)
  1. MEGESTROL ACETATE [Concomitant]
  2. VITAMIN B6 [Concomitant]
  3. LOVASTATIN [Concomitant]
  4. OSOSORBIDE MONONITRATE [Concomitant]
  5. COMBIVENT [Concomitant]
  6. IPRATROPIUM BROMIDE [Concomitant]
  7. ASPIRIN [Concomitant]
  8. NOVOLIN 70/30 [Concomitant]
  9. ATROVENT [Concomitant]
  10. REVLIMID [Suspect]
     Indication: MULTIPLE MYELOMA
     Dosage: 10MG EVERY OTHER DAY ORALLY
     Route: 048
     Dates: start: 20100501, end: 20101001
  11. ATENOLOL [Concomitant]
  12. FUROSEMIDE [Concomitant]
  13. LISINOPRIL [Concomitant]
  14. ISONIAZID [Concomitant]

REACTIONS (2)
  - PANCYTOPENIA [None]
  - COMPLETED SUICIDE [None]
